FAERS Safety Report 10690481 (Version 1)
Quarter: 2015Q1

REPORT INFORMATION
  Report Type: Spontaneous
  Country: US (occurrence: None)
  Receive Date: 20150102
  Receipt Date: 20150102
  Transmission Date: 20150720
  Serious: Yes (Hospitalization, Disabling, Other)
  Sender: FDA-Public Use
  Company Number: None

PATIENT
  Age: 32 Year
  Sex: Male
  Weight: 93.9 kg

DRUGS (3)
  1. SEROQUEL [Suspect]
     Active Substance: QUETIAPINE FUMARATE
     Indication: BIPOLAR DISORDER
     Route: 048
  2. SEROQUEL [Suspect]
     Active Substance: QUETIAPINE FUMARATE
     Indication: PARANOIA
     Route: 048
  3. SEROQUEL [Suspect]
     Active Substance: QUETIAPINE FUMARATE
     Indication: DELUSION
     Route: 048

REACTIONS (11)
  - Condition aggravated [None]
  - Phobia [None]
  - Paranoia [None]
  - Bipolar disorder [None]
  - Obsessive-compulsive disorder [None]
  - Product quality issue [None]
  - Drug dependence [None]
  - Anxiety [None]
  - Mental disorder [None]
  - Delusion [None]
  - Insomnia [None]
